FAERS Safety Report 6305112-3 (Version None)
Quarter: 2009Q3

REPORT INFORMATION
  Report Type: 
  Country: None (occurrence: None)
  Receive Date: 20090811
  Receipt Date: 20090731
  Transmission Date: 20100115
  Serious: Yes (Death)
  Sender: FDA-Public Use
  Company Number: JP-PFIZER INC-2009250364

PATIENT
  Age: 77 Year

DRUGS (4)
  1. EPIRUBICIN HCL [Suspect]
  2. GELATIN [Concomitant]
  3. LIPIODOL [Concomitant]
  4. OPTIRAY 350 [Concomitant]

REACTIONS (1)
  - INTERSTITIAL LUNG DISEASE [None]
